FAERS Safety Report 17180206 (Version 3)
Quarter: 2020Q1

REPORT INFORMATION
  Report Type: Spontaneous
  Country: MX (occurrence: MX)
  Receive Date: 20191219
  Receipt Date: 20200226
  Transmission Date: 20200409
  Serious: Yes (Other)
  Sender: FDA-Public Use
  Company Number: MX-PFIZER INC-2019528622

PATIENT
  Age: 12 Year
  Sex: Male
  Weight: 24 kg

DRUGS (2)
  1. GENOTROPIN [Suspect]
     Active Substance: SOMATROPIN
     Indication: BODY HEIGHT BELOW NORMAL
     Dosage: 4 (UNIT NOT REPORTED) FROM MONDAY THROUGH SATURDAY AND 6 (UNIT NOT REPORTED) ON SUNDAY
     Route: 058
     Dates: start: 2014
  2. GENOTROPIN [Suspect]
     Active Substance: SOMATROPIN
     Indication: UNDERWEIGHT

REACTIONS (4)
  - Device issue [Unknown]
  - Oesophageal disorder [Recovered/Resolved]
  - Drug dose omission by device [Unknown]
  - Gastric ulcer [Recovered/Resolved]

NARRATIVE: CASE EVENT DATE: 2018
